FAERS Safety Report 8198951-8 (Version None)
Quarter: 2012Q1

REPORT INFORMATION
  Report Type: 
  Country: None (occurrence: None)
  Receive Date: 20120306
  Receipt Date: 20120223
  Transmission Date: 20120608
  Serious: Yes (Other)
  Sender: FDA-Public Use
  Company Number: 1202-082

PATIENT
  Age: 82 Year
  Sex: Female
  Weight: 82.1011 kg

DRUGS (7)
  1. EYLEA (AFLIBERCEPT) (INJECTION) (AFLIBERCEPT) EYLEA (AFLIBERCEPT) (INJ [Suspect]
     Indication: CHOROIDAL NEOVASCULARISATION
     Dosage: 2 MG, INTRAVITREAL
     Dates: start: 20120126
  2. SPIRONOLACTONE HCTZ (ALDACTAZIDE A) [Concomitant]
  3. ALPRAZOLAM [Concomitant]
  4. AREDS VITAMINS (ICAPS AREDS) [Concomitant]
  5. ASPIRIN [Concomitant]
  6. CITALOPRAM HYDROBROMIDE [Concomitant]
  7. SIMVASTATIN [Concomitant]

REACTIONS (4)
  - VISUAL ACUITY REDUCED [None]
  - VITREOUS HAEMORRHAGE [None]
  - EYE INFLAMMATION [None]
  - RETINAL HAEMORRHAGE [None]
